FAERS Safety Report 20967671 (Version 2)
Quarter: 2022Q2

REPORT INFORMATION
  Report Type: Spontaneous
  Country: US (occurrence: US)
  Receive Date: 20220616
  Receipt Date: 20220620
  Transmission Date: 20220721
  Serious: No
  Sender: FDA-Public Use
  Company Number: US-PFIZER INC-PV202200002486

PATIENT
  Age: 68 Year
  Sex: Male
  Weight: 113.4 kg

DRUGS (1)
  1. XANAX [Suspect]
     Active Substance: ALPRAZOLAM
     Indication: Panic disorder
     Dosage: 0.5 MG, 4X/DAY (EVERY 4 HRS)
     Route: 048
     Dates: start: 20220530

REACTIONS (2)
  - Drug ineffective [Unknown]
  - Off label use [Unknown]
